FAERS Safety Report 10179753 (Version 1)
Quarter: 2014Q2

REPORT INFORMATION
  Report Type: Spontaneous
  Country: US (occurrence: US)
  Receive Date: 20140519
  Receipt Date: 20140519
  Transmission Date: 20141212
  Serious: No
  Sender: FDA-Public Use
  Company Number: US-AMGEN INC.-USASP2013081515

PATIENT
  Age: 83 Year
  Sex: Female

DRUGS (8)
  1. PROLIA [Suspect]
     Indication: PRODUCT USED FOR UNKNOWN INDICATION
     Dosage: UNK
     Route: 065
     Dates: start: 20130430
  2. MONOPRIL [Concomitant]
     Dosage: UNK
     Route: 065
  3. SYNTHROID [Concomitant]
     Dosage: UNK
     Route: 065
  4. DYAZIDE [Concomitant]
     Dosage: UNK
     Route: 065
  5. XANAX [Concomitant]
     Dosage: UNK
     Route: 065
  6. AMLODIPINE [Concomitant]
     Dosage: UNK
     Route: 065
  7. ZOLOFT [Concomitant]
     Dosage: UNK
     Route: 065
  8. TRAMADOL [Concomitant]
     Dosage: UNK
     Route: 065

REACTIONS (4)
  - Spinal pain [Not Recovered/Not Resolved]
  - Pain in jaw [Not Recovered/Not Resolved]
  - Arthralgia [Not Recovered/Not Resolved]
  - Musculoskeletal pain [Not Recovered/Not Resolved]
